FAERS Safety Report 16139287 (Version 1)
Quarter: 2019Q1

REPORT INFORMATION
  Report Type: Spontaneous
  Country: US (occurrence: US)
  Receive Date: 20190330
  Receipt Date: 20190330
  Transmission Date: 20190418
  Serious: Yes (Hospitalization, Other)
  Sender: FDA-Public Use
  Company Number: PHHY2019US067339

PATIENT
  Age: 65 Year
  Sex: Female
  Weight: 48 kg

DRUGS (5)
  1. FENTANYL. [Suspect]
     Active Substance: FENTANYL
     Indication: ANALGESIC THERAPY
     Dosage: 25 UG, UNK
     Route: 042
  2. FENTANYL. [Suspect]
     Active Substance: FENTANYL
     Dosage: 50 UG, UNK
     Route: 042
  3. FENTANYL. [Suspect]
     Active Substance: FENTANYL
     Dosage: 175 UG, UNK
     Route: 042
  4. KETOROLAC [Suspect]
     Active Substance: KETOROLAC\KETOROLAC TROMETHAMINE
     Indication: ANALGESIC THERAPY
     Dosage: 15 MG, UNK
     Route: 042
  5. BUPIVACAINE. [Concomitant]
     Active Substance: BUPIVACAINE
     Indication: LOCAL ANAESTHESIA
     Dosage: 25 ML, UNK (30 ML OF 0.25% BUPIVACAINE AND 20 ML OF 1.3% LIPOSOMAL BUPIVACAINE)
     Route: 042

REACTIONS (5)
  - Unresponsive to stimuli [Unknown]
  - Apnoea [Unknown]
  - Respiratory acidosis [Recovering/Resolving]
  - Overdose [Unknown]
  - Respiratory depression [Recovering/Resolving]
